FAERS Safety Report 22089731 (Version 3)
Quarter: 2023Q4

REPORT INFORMATION
  Report Type: Report from Study
  Country: CO (occurrence: CO)
  Receive Date: 20230313
  Receipt Date: 20231207
  Transmission Date: 20240110
  Serious: Yes (Hospitalization, Other)
  Sender: FDA-Public Use
  Company Number: CO-UCBSA-2023004451

PATIENT
  Age: 53 Year
  Sex: Female
  Weight: 85 kg

DRUGS (13)
  1. CERTOLIZUMAB PEGOL [Suspect]
     Active Substance: CERTOLIZUMAB PEGOL
     Indication: Rheumatoid arthritis
     Dosage: 400 MILLIGRAM, EV 4 WEEKS
     Route: 058
     Dates: start: 20190708, end: 20220114
  2. CERTOLIZUMAB PEGOL [Suspect]
     Active Substance: CERTOLIZUMAB PEGOL
     Dosage: 400 MILLIGRAM, EV 4 WEEKS
     Route: 058
     Dates: start: 20230404, end: 20231013
  3. METHOTREXATE [Concomitant]
     Active Substance: METHOTREXATE
     Indication: Product used for unknown indication
     Dosage: UNK
  4. PREGABALIN [Concomitant]
     Active Substance: PREGABALIN
     Indication: Product used for unknown indication
     Dosage: 74 MILLIGRAM, EV 8 HOURS
     Route: 048
  5. SINALGEN MAX [Concomitant]
     Indication: Rheumatoid arthritis
     Dosage: UNK, EV 8 HOURS
     Route: 048
  6. FOLIC ACID [Concomitant]
     Active Substance: FOLIC ACID
     Indication: Rheumatoid arthritis
     Dosage: UNK
     Route: 048
  7. CALCIUM [Concomitant]
     Active Substance: CALCIUM
     Indication: Rheumatoid arthritis
     Dosage: UNK
     Route: 048
  8. VITAMIN E + MAGNESIUM [Concomitant]
     Indication: Rheumatoid arthritis
     Dosage: UNK
     Route: 048
  9. ESOMEPRAZOLE [Concomitant]
     Active Substance: ESOMEPRAZOLE
     Indication: Gastritis
     Dosage: UNK
     Route: 048
  10. METAMIZOLE SODIUM [Concomitant]
     Active Substance: METAMIZOLE SODIUM
     Indication: Product used for unknown indication
     Dosage: UNK
  11. VITAMIN A [Concomitant]
     Active Substance: VITAMIN A
     Indication: Product used for unknown indication
     Dosage: UNK
  12. VITAMIN C [Concomitant]
     Active Substance: ASCORBIC ACID
     Indication: Product used for unknown indication
     Dosage: UNK
  13. BEDOYECTA [HYDROXOCOBALAMIN;PYRIDOXINE HYDROCHLORIDE;THIAMINE HYDROCHL [Concomitant]
     Indication: Product used for unknown indication
     Dosage: UNK

REACTIONS (7)
  - Road traffic accident [Recovered/Resolved]
  - Ankle fracture [Recovering/Resolving]
  - Ankle operation [Recovered/Resolved]
  - Postoperative wound infection [Recovering/Resolving]
  - Pain [Unknown]
  - Drug ineffective [Unknown]
  - Incorrect dose administered [Unknown]

NARRATIVE: CASE EVENT DATE: 20190708
